FAERS Safety Report 24046261 (Version 1)
Quarter: 2024Q3

REPORT INFORMATION
  Report Type: Spontaneous
  Country: US (occurrence: None)
  Receive Date: 20240703
  Receipt Date: 20240703
  Transmission Date: 20241016
  Serious: No
  Sender: Public
  Company Number: None

PATIENT
  Age: 31 Year
  Sex: Female
  Weight: 140 kg

DRUGS (3)
  1. CYTARABINE [Suspect]
     Active Substance: CYTARABINE
     Dates: end: 20230707
  2. DASATINIB [Suspect]
     Active Substance: DASATINIB
     Dates: end: 20230709
  3. METHOTREXATE [Concomitant]
     Active Substance: METHOTREXATE
     Dates: end: 20230713

REACTIONS (5)
  - Pain in extremity [None]
  - Peripheral swelling [None]
  - Cellulitis [None]
  - Weight bearing difficulty [None]
  - Erythema [None]

NARRATIVE: CASE EVENT DATE: 20230707
